FAERS Safety Report 6010276-5 (Version None)
Quarter: 2008Q4

REPORT INFORMATION
  Report Type: 
  Country: None (occurrence: None)
  Receive Date: 20081218
  Receipt Date: 20080410
  Transmission Date: 20090506
  Serious: No
  Sender: FDA-Public Use
  Company Number: A0722145A

PATIENT
  Age: 51 Year
  Sex: Female

DRUGS (2)
  1. FLONASE [Suspect]
     Dosage: 27.5MCG PER DAY
     Route: 045
     Dates: start: 20040101
  2. THYROID MEDICATION [Concomitant]

REACTIONS (2)
  - DRUG INEFFECTIVE [None]
  - HEADACHE [None]
